FAERS Safety Report 13140912 (Version 4)
Quarter: 2017Q1

REPORT INFORMATION
  Report Type: Spontaneous
  Country: US (occurrence: US)
  Receive Date: 20170123
  Receipt Date: 20170222
  Transmission Date: 20170428
  Serious: Yes (Death, Hospitalization)
  Sender: FDA-Public Use
  Company Number: US-JNJFOC-20170120010

PATIENT
  Age: 68 Year
  Sex: Female

DRUGS (2)
  1. XARELTO [Suspect]
     Active Substance: RIVAROXABAN
     Indication: DEVICE RELATED THROMBOSIS
     Route: 048
     Dates: end: 20140331
  2. XARELTO [Suspect]
     Active Substance: RIVAROXABAN
     Indication: DEVICE RELATED THROMBOSIS
     Route: 048
     Dates: start: 20131101, end: 201403

REACTIONS (5)
  - Off label use [Unknown]
  - Death [Fatal]
  - Haemorrhagic stroke [Unknown]
  - Product use issue [Unknown]
  - Ischaemic stroke [Unknown]

NARRATIVE: CASE EVENT DATE: 20131101
